FAERS Safety Report 18456511 (Version 3)
Quarter: 2021Q1

REPORT INFORMATION
  Report Type: Report from Study
  Country: None (occurrence: CA)
  Receive Date: 20201103
  Receipt Date: 20210110
  Transmission Date: 20210419
  Serious: Yes (Other)
  Sender: FDA-Public Use
  Company Number: CA-ABBVIE-20K-028-3612926-00

PATIENT
  Age: 57 Year
  Sex: Male

DRUGS (1)
  1. SKYRIZI [Suspect]
     Active Substance: RISANKIZUMAB-RZAA
     Indication: PSORIASIS
     Route: 058
     Dates: start: 20200917

REACTIONS (19)
  - Skin laceration [Recovering/Resolving]
  - Skin burning sensation [Unknown]
  - Dry skin [Not Recovered/Not Resolved]
  - Psoriasis [Unknown]
  - Skin exfoliation [Unknown]
  - Pruritus [Unknown]
  - Suicidal ideation [Not Recovered/Not Resolved]
  - Impaired healing [Unknown]
  - Anger [Unknown]
  - Skin fissures [Not Recovered/Not Resolved]
  - Drug ineffective [Unknown]
  - Unevaluable event [Unknown]
  - Onychomadesis [Unknown]
  - Nail hypertrophy [Unknown]
  - Depressed mood [Unknown]
  - Impaired work ability [Unknown]
  - Frustration tolerance decreased [Unknown]
  - Erythema [Unknown]
  - Eyelid skin dryness [Not Recovered/Not Resolved]

NARRATIVE: CASE EVENT DATE: 2020
